FAERS Safety Report 7579418-4 (Version None)
Quarter: 2011Q2

REPORT INFORMATION
  Report Type: 
  Country: None (occurrence: None)
  Receive Date: 20110629
  Receipt Date: 20110621
  Transmission Date: 20111010
  Serious: Yes (Hospitalization)
  Sender: FDA-Public Use
  Company Number: US-BIOGENIDEC-2011BI023024

PATIENT
  Age: 48 Year
  Sex: Female

DRUGS (2)
  1. TYSABRI [Suspect]
     Indication: MULTIPLE SCLEROSIS
     Route: 042
     Dates: start: 20100118
  2. MIRAPEX [Concomitant]
     Indication: TREMOR

REACTIONS (4)
  - TREMOR [None]
  - HALLUCINATION [None]
  - MULTIPLE SCLEROSIS RELAPSE [None]
  - WHITE BLOOD CELL COUNT INCREASED [None]
